FAERS Safety Report 8713035 (Version 2)
Quarter: 2013Q1

REPORT INFORMATION
  Report Type: Spontaneous
  Country: BR (occurrence: BR)
  Receive Date: 20120808
  Receipt Date: 20130319
  Transmission Date: 20140127
  Serious: Yes (Hospitalization, Other)
  Sender: FDA-Public Use
  Company Number: BR-AMGEN-BRASP2012001537

PATIENT
  Age: 61 Year
  Sex: Female
  Weight: 80 kg

DRUGS (9)
  1. ENBREL [Suspect]
     Indication: RHEUMATOID ARTHRITIS
     Dosage: 50 MG, 1X/WEEK
     Route: 058
     Dates: start: 20110411
  2. ENBREL [Suspect]
     Dosage: 50 MG, ONCE WEEKLY
     Route: 058
     Dates: end: 2012
  3. ENBREL [Suspect]
     Dosage: 50 MG, WEEKLY
     Route: 058
     Dates: start: 201301
  4. PRELONE                            /00016201/ [Concomitant]
     Dosage: UNK
  5. LOSARTAN [Concomitant]
     Dosage: 50 MG, UNK
  6. SIMVASTATIN [Concomitant]
     Dosage: UNK
  7. GLIFAGE [Concomitant]
     Dosage: UNK
  8. HIDRION [Concomitant]
     Dosage: UNK
  9. FOLACIN                            /00024201/ [Concomitant]
     Dosage: UNK

REACTIONS (7)
  - Weight increased [Unknown]
  - Rheumatic disorder [Unknown]
  - Cystitis [Recovered/Resolved]
  - Immunosuppression [Unknown]
  - Pyrexia [Unknown]
  - Bedridden [Recovered/Resolved]
  - Infection [Recovered/Resolved]
